FAERS Safety Report 22272942 (Version 1)
Quarter: 2023Q2

REPORT INFORMATION
  Report Type: Spontaneous
  Country: NZ (occurrence: NZ)
  Receive Date: 20230502
  Receipt Date: 20230502
  Transmission Date: 20230722
  Serious: Yes (Other)
  Sender: FDA-Public Use
  Company Number: NZ-BEH-2023156765

PATIENT
  Age: 16 Year
  Sex: Female
  Weight: 100 kg

DRUGS (13)
  1. PRIVIGEN [Suspect]
     Active Substance: HUMAN IMMUNOGLOBULIN G
     Indication: Encephalitis autoimmune
     Dosage: 20 GRAM
     Route: 042
     Dates: start: 20230317, end: 20230317
  2. METHYLPREDNISOLONE [Concomitant]
     Active Substance: METHYLPREDNISOLONE
     Route: 065
  3. VANCOMYCIN [Concomitant]
     Active Substance: VANCOMYCIN
     Indication: Infection
     Dosage: 2 GRAM
     Route: 042
     Dates: start: 20230317
  4. ACYCLOVIR [Concomitant]
     Active Substance: ACYCLOVIR
     Indication: Infection
     Dosage: 700 MILLIGRAM
     Route: 042
     Dates: start: 20230307
  5. ACTRAPID [Concomitant]
     Active Substance: INSULIN HUMAN
     Indication: Blood glucose fluctuation
     Dosage: UNK
     Route: 042
     Dates: start: 20230312
  6. PIPERACILLIN SODIUM\TAZOBACTAM SODIUM [Concomitant]
     Active Substance: PIPERACILLIN SODIUM\TAZOBACTAM SODIUM
     Dosage: 4.5 GRAM
     Route: 042
     Dates: start: 20230305
  7. PROPOFOL [Concomitant]
     Active Substance: PROPOFOL
     Indication: Sedation
     Dosage: 100 GRAM
     Route: 042
     Dates: start: 20230316
  8. ROCURONIUM [Concomitant]
     Active Substance: ROCURONIUM BROMIDE
     Indication: Sedation
     Dosage: 100 MILLIGRAM
     Route: 042
     Dates: start: 20230316
  9. MIDAZOLAM [Concomitant]
     Active Substance: MIDAZOLAM
     Indication: Sedation
     Dosage: 10 MILLIGRAM
     Route: 042
     Dates: start: 20230316
  10. MORPHINE [Concomitant]
     Active Substance: MORPHINE
     Indication: Analgesic therapy
     Dosage: 5 MILLIGRAM
     Route: 042
     Dates: start: 20230316
  11. ALBUMIN HUMAN [Concomitant]
     Active Substance: ALBUMIN HUMAN
     Dosage: 100 MILLILITER
     Route: 065
     Dates: start: 20230314, end: 20230314
  12. ALBUMEX 4 [Concomitant]
     Dosage: UNK
     Route: 065
     Dates: start: 20230302, end: 20230314
  13. INTRAGAM P [Concomitant]
     Active Substance: HUMAN IMMUNOGLOBULIN G
     Dosage: UNK
     Route: 065
     Dates: start: 20230228, end: 20230301

REACTIONS (7)
  - Anaphylactic reaction [Recovered/Resolved]
  - Oxygen saturation decreased [Recovered/Resolved]
  - Rash [Recovered/Resolved]
  - Tachycardia [Recovered/Resolved]
  - Respiratory rate increased [Recovered/Resolved]
  - No adverse event [Unknown]
  - Off label use [Unknown]

NARRATIVE: CASE EVENT DATE: 20230317
